FAERS Safety Report 17373587 (Version 1)
Quarter: 2020Q1

REPORT INFORMATION
  Report Type: Spontaneous
  Country: GR (occurrence: GR)
  Receive Date: 20200205
  Receipt Date: 20200205
  Transmission Date: 20200409
  Serious: Yes (Other)
  Sender: FDA-Public Use
  Company Number: GR-FERRINGPH-2020FE00571

PATIENT
  Age: 19 Year
  Sex: Female

DRUGS (1)
  1. MINIRIN [Suspect]
     Active Substance: DESMOPRESSIN ACETATE
     Indication: DIABETES INSIPIDUS
     Dosage: 120-240 MG 3 TIMES DAILY
     Route: 048

REACTIONS (2)
  - Renal salt-wasting syndrome [Recovered/Resolved]
  - Mineralocorticoid deficiency [Recovered/Resolved]
